FAERS Safety Report 6109555-2 (Version None)
Quarter: 2009Q1

REPORT INFORMATION
  Report Type: 
  Country: None (occurrence: None)
  Receive Date: 20090310
  Receipt Date: 20090223
  Transmission Date: 20090719
  Serious: Yes (Hospitalization)
  Sender: FDA-Public Use
  Company Number: US-JNJFOC-20090300044

PATIENT
  Sex: Female
  Weight: 52.8 kg

DRUGS (14)
  1. DARUNAVIR [Suspect]
     Indication: HIV INFECTION
     Route: 048
  2. RITONAVIR [Suspect]
     Indication: HIV INFECTION
     Route: 048
  3. MARAVIROC [Suspect]
     Indication: HIV INFECTION
     Route: 048
  4. RALTEGRAVIR [Suspect]
     Indication: HIV INFECTION
     Route: 048
  5. VALGANCICLOVIR HCL [Concomitant]
  6. SEPTRA DS [Concomitant]
  7. MULTI-VITAMINS [Concomitant]
  8. ZITHROMAX [Concomitant]
  9. PEPCID [Concomitant]
  10. PULMICORT-100 [Concomitant]
  11. ALBUTEROL [Concomitant]
  12. TRISPEC [Concomitant]
  13. ZYRTEC [Concomitant]
     Indication: NASOPHARYNGITIS
  14. ZYRTEC [Concomitant]
     Indication: RHINITIS ALLERGIC

REACTIONS (2)
  - NEUTROPENIA [None]
  - THROMBOCYTOPENIA [None]
